FAERS Safety Report 6834289-6 (Version None)
Quarter: 2010Q3

REPORT INFORMATION
  Report Type: 
  Country: None (occurrence: None)
  Receive Date: 20100712
  Receipt Date: 20070419
  Transmission Date: 20110219
  Serious: No
  Sender: FDA-Public Use
  Company Number: US-PFIZER INC-2007033069

PATIENT
  Sex: Female

DRUGS (3)
  1. CHANTIX [Suspect]
     Indication: SMOKING CESSATION THERAPY
     Route: 048
     Dates: start: 20070406
  2. FOSAMAX [Concomitant]
  3. WELLBUTRIN [Concomitant]
     Dates: end: 20070101

REACTIONS (2)
  - INTENTIONAL DRUG MISUSE [None]
  - NAUSEA [None]
